FAERS Safety Report 7628463-9 (Version None)
Quarter: 2011Q3

REPORT INFORMATION
  Report Type: 
  Country: None (occurrence: None)
  Receive Date: 20110722
  Receipt Date: 20110714
  Transmission Date: 20111222
  Serious: Yes (Hospitalization)
  Sender: FDA-Public Use
  Company Number: US-US-EMD SERONO, INC.-7071605

PATIENT
  Sex: Female

DRUGS (4)
  1. REBIF [Suspect]
     Indication: MULTIPLE SCLEROSIS
     Dates: start: 20090701
  2. REBIF [Suspect]
     Dates: end: 20100801
  3. IMITREX [Concomitant]
     Indication: MIGRAINE
  4. REBIF [Suspect]
     Dates: start: 20110515

REACTIONS (2)
  - MATERNAL EXPOSURE DURING PREGNANCY [None]
  - GESTATIONAL HYPERTENSION [None]
